FAERS Safety Report 8810723 (Version 1)
Quarter: 2012Q4

REPORT INFORMATION
  Report Type: Spontaneous
  Country: JP (occurrence: None)
  Receive Date: 20120920
  Receipt Date: 20120920
  Transmission Date: 20130627
  Serious: Yes (Other)
  Sender: FDA-Public Use
  Company Number: JP-2012-16276

PATIENT
  Age: 69 Year
  Sex: Male

DRUGS (8)
  1. SAMSCA (TOLVAPTAN) TABLET [Suspect]
     Dosage: 15 Mg milligram(s), qam, Oral
     Route: 048
     Dates: start: 20120802
  2. SAMSCA (TOLVAPTAN) TABLET [Suspect]
     Route: 048
     Dates: end: 20120815
  3. SIGMART (NICORANDI) TABLET [Concomitant]
  4. TAKEPRON (LANSOPRAZOLE) TABLET [Concomitant]
  5. LASIX (FUROSEMIDE) [Concomitant]
  6. DIART (AZOSEMIDE) [Concomitant]
  7. SALOBEL (ALLOPURINOL) TABLET [Concomitant]
  8. ALDACTONE A (SPIRONOLACTONE) [Concomitant]

REACTIONS (5)
  - Renal failure [None]
  - Blood glucose increased [None]
  - Dehydration [None]
  - Cardiac failure [None]
  - Infection [None]
